FAERS Safety Report 4611105-4 (Version None)
Quarter: 2005Q1

REPORT INFORMATION
  Report Type: 
  Country: None (occurrence: None)
  Receive Date: 20050316
  Receipt Date: 20050316
  Transmission Date: 20050727
  Serious: No
  Sender: FDA-Public Use
  Company Number: None

PATIENT
  Age: 80 Year
  Sex: Female
  Weight: 56.6996 kg

DRUGS (2)
  1. ALPHAGAN P [Suspect]
     Indication: GLAUCOMA
     Dosage: MORNING + NIGHT
     Dates: start: 20020119, end: 20020928
  2. DYAZIDE [Concomitant]

REACTIONS (10)
  - DRUG HYPERSENSITIVITY [None]
  - ERYTHEMA [None]
  - EYE PAIN [None]
  - EYELID PTOSIS [None]
  - LACRIMATION INCREASED [None]
  - MACULAR DEGENERATION [None]
  - OCULAR HYPERAEMIA [None]
  - PHOTOPSIA [None]
  - RASH SCALY [None]
  - VISUAL ACUITY REDUCED [None]
